FAERS Safety Report 4447100-8 (Version None)
Quarter: 2004Q3

REPORT INFORMATION
  Report Type: 
  Country: None (occurrence: None)
  Receive Date: 20040813
  Receipt Date: 20040520
  Transmission Date: 20050211
  Serious: No
  Sender: FDA-Public Use
  Company Number: S04-USA-03591-01

PATIENT
  Sex: Male

DRUGS (2)
  1. NAMENDA [Suspect]
  2. NAMENDA [Suspect]
     Dosage: 10 MG QD PO
     Route: 048

REACTIONS (2)
  - BLOOD URINE [None]
  - SOMNOLENCE [None]
